FAERS Safety Report 13072749 (Version 1)
Quarter: 2016Q4

REPORT INFORMATION
  Report Type: Spontaneous
  Country: US (occurrence: US)
  Receive Date: 20161229
  Receipt Date: 20161229
  Transmission Date: 20170207
  Serious: No
  Sender: FDA-Public Use
  Company Number: US-SA-2016SA053851

PATIENT
  Age: 66 Year
  Sex: Female

DRUGS (2)
  1. XTANDI [Suspect]
     Active Substance: ENZALUTAMIDE
     Indication: PROSTATE CANCER
     Route: 048
  2. TAXOTERE [Suspect]
     Active Substance: DOCETAXEL
     Route: 065
     Dates: end: 20160118

REACTIONS (4)
  - Dizziness [Unknown]
  - Adverse event [Unknown]
  - Activities of daily living impaired [Unknown]
  - Drug intolerance [Unknown]

NARRATIVE: CASE EVENT DATE: 201511
